FAERS Safety Report 6006395-X (Version None)
Quarter: 2008Q4

REPORT INFORMATION
  Report Type: 
  Country: None (occurrence: None)
  Receive Date: 20081215
  Receipt Date: 20081201
  Transmission Date: 20090506
  Serious: Yes (Other)
  Sender: FDA-Public Use
  Company Number: 2008AL012078

PATIENT
  Age: 47 Year
  Sex: Female

DRUGS (2)
  1. IRINOTECAN HYDROCHLORIDE [Suspect]
     Indication: CERVIX CARCINOMA STAGE III
     Dosage: 107.5 MG
  2. NEDAPLATIN [Concomitant]

REACTIONS (7)
  - BLOOD FOLLICLE STIMULATING HORMONE INCREASED [None]
  - BLOOD LUTEINISING HORMONE INCREASED [None]
  - DIARRHOEA [None]
  - MALAISE [None]
  - MENOPAUSAL DISORDER [None]
  - OESTRADIOL DECREASED [None]
  - OVARIAN DISORDER [None]
